FAERS Safety Report 8095997-5 (Version None)
Quarter: 2012Q1

REPORT INFORMATION
  Report Type: 
  Country: None (occurrence: None)
  Receive Date: 20120129
  Receipt Date: 20111227
  Transmission Date: 20120608
  Serious: No
  Sender: FDA-Public Use
  Company Number: US-ABBOTT-11P-163-0886974-00

PATIENT
  Age: 63 Year
  Sex: Female

DRUGS (12)
  1. HUMIRA [Suspect]
     Indication: ANKYLOSING SPONDYLITIS
     Dates: start: 20111201
  2. BENTYL [Concomitant]
  3. HYDROMORPHONE HCL [Concomitant]
     Indication: PAIN
  4. ATENOLOL [Concomitant]
     Indication: HYPERTENSION
     Dosage: DAILY
  5. HYDROCHLOROTHIAZIDE [Concomitant]
     Indication: HYPERTENSION
     Dosage: DAILY
  6. PREDNISONE TAB [Concomitant]
     Indication: PRODUCT USED FOR UNKNOWN INDICATION
     Dosage: DAILY, WEANING DOWN 1MG/MONTH
  7. RECLAST [Concomitant]
     Indication: OSTEOPENIA
     Dosage: INFUSION ANNUALLY
  8. DIAZEPAM [Concomitant]
     Indication: MUSCLE SPASMS
  9. BENTYL [Concomitant]
     Indication: ABDOMINAL PAIN
  10. PRILOSEC [Concomitant]
     Indication: GASTROOESOPHAGEAL REFLUX DISEASE
     Dosage: CURRENTLY TAKING AS REQUIRED
  11. SIMVASTATIN [Concomitant]
     Indication: BLOOD CHOLESTEROL INCREASED
     Dosage: DAILY
  12. PHENERGAN [Concomitant]
     Indication: NAUSEA

REACTIONS (1)
  - INJECTION SITE REACTION [None]
